FAERS Safety Report 19086388 (Version 1)
Quarter: 2021Q2

REPORT INFORMATION
  Report Type: Spontaneous
  Country: NL (occurrence: NL)
  Receive Date: 20210402
  Receipt Date: 20210402
  Transmission Date: 20210717
  Serious: Yes (Other)
  Sender: FDA-Public Use
  Company Number: NL-TILLOMED LABORATORIES LTD.-2021-EPL-000969

PATIENT
  Age: 35 Year
  Sex: Female
  Weight: 57 kg

DRUGS (22)
  1. METRONIDAZOLE. [Concomitant]
     Active Substance: METRONIDAZOLE
     Dosage: CREAM, 10 MG/G (MILLIGRAM PER GRAM)
  2. REFRESH CELLUVISC [Concomitant]
     Active Substance: CARBOXYMETHYLCELLULOSE SODIUM
     Dosage: OEYE DROPS, 10 MG/ML (MILLIGRAM PER MILLILITER)
  3. LOPROX [Concomitant]
     Active Substance: CICLOPIROX\CICLOPIROX OLAMINE
     Dosage: CREAM, 10 MG/G (MILLIGRAM PER GRAM)
  4. FESOTERODINE [Concomitant]
     Active Substance: FESOTERODINE
     Dosage: MODIFIED RELEASE TABLET, 4 MG
  5. IVERMECTIN. [Concomitant]
     Active Substance: IVERMECTIN
     Dosage: CREAM, 10 MG/G (MILLIGRAM PER GRAM)
  6. COLECALCIFEROL [Concomitant]
     Active Substance: CHOLECALCIFEROL
     Dosage: SOLUTION, 100000 IE/ML (EENHEDEN PER MILLILITER)
  7. NITROFURANTOIN. [Concomitant]
     Active Substance: NITROFURANTOIN
     Dosage: MODIFIED RELEASE CAPSULE, 100 MG (MILLIGRAM)
  8. CLOBETASOL [Concomitant]
     Active Substance: CLOBETASOL
     Dosage: OINTMENT, 0.5 MG / G (MILLIGRAM PER GRAM)
  9. PLANTAGO OVATA [Concomitant]
     Active Substance: HERBALS\PLANTAGO OVATA LEAF
     Dosage: SACHET (POWDER), 3,4 G (GRAM)
  10. PANTOPRAZOLE [Concomitant]
     Active Substance: PANTOPRAZOLE
     Dosage: GASTRO?RESISTANT TABLET, 40 MG (MILLIGRAM)
  11. VIDISIC CARBOGEL [Concomitant]
     Dosage: EYE GEL, 2 MG/G (MILLIGRAM PER GRAM)
  12. PARACETAMOL [Concomitant]
     Active Substance: ACETAMINOPHEN
     Dosage: UNK
  13. PREGABALIN. [Concomitant]
     Active Substance: PREGABALIN
     Dosage: CAPSULE, 75 MG (MILLIGRAM)
  14. ETORICOXIB. [Concomitant]
     Active Substance: ETORICOXIB
     Dosage: FILMOMHULDE TABLET, 30 MG (MILLIGRAM)
  15. TRANEXAMIC ACID. [Suspect]
     Active Substance: TRANEXAMIC ACID
     Indication: HAEMORRHOID OPERATION
     Dosage: 1000 MILLIGRAM, PER 8 HOURS, 3X PER DAY 2 PIECES ON MARCH 3, 2021, 1 PIECE TAKEN ON MARCH 4, 2021
     Dates: start: 20210303, end: 20210304
  16. BERIGLOBIN P INJVLST [Concomitant]
     Dosage: IMMUNOGLOBULIN NORMAL INFUSION / BERIGLOBIN P INJVLST 160 MG / ML WWSP 2, 50MG/400ML
  17. ALGELDRATE (ALUMINUM HYDROXIDE) / MAGNESIUM HYDROXIDE [Concomitant]
     Dosage: CHEWABLE TABLET 724MG
  18. PREGABALIN. [Concomitant]
     Active Substance: PREGABALIN
     Dosage: CAPSULE, 150 MG
  19. SILVER SULFADIAZINE. [Concomitant]
     Active Substance: SILVER SULFADIAZINE
     Dosage: CREAM, 10 MG/G (MILLIGRAM PER GRAM)
  20. CETOMACROGOL [Concomitant]
     Active Substance: COSMETICS
     Dosage: CETOMACROGOL CREAM WITH PETROLEUM JELLY
  21. HYDROCORTISONE / MICONAZOLE [Concomitant]
     Dosage: OINTMENT, 10/20 MG/G (MILLIGRAM PER GRAM)
  22. HYALURON / CARBOM [Concomitant]
     Dosage: EYE DROPS, 0,15/0,15 MG/ML (MILLIGRAM PER MILLILITER)

REACTIONS (3)
  - Angioedema [Recovered/Resolved]
  - Vision blurred [Recovered/Resolved]
  - Rash [Recovered/Resolved]

NARRATIVE: CASE EVENT DATE: 20210304
